FAERS Safety Report 8023013-X (Version None)
Quarter: 2012Q1

REPORT INFORMATION
  Report Type: 
  Country: None (occurrence: None)
  Receive Date: 20120104
  Receipt Date: 20111227
  Transmission Date: 20120608
  Serious: Yes (Hospitalization)
  Sender: FDA-Public Use
  Company Number: JP-CELGENEUS-087-21880-11063919

PATIENT
  Sex: Female

DRUGS (21)
  1. SULFAMETHOXAZOLE AND TRIMETHOPRIM [Concomitant]
     Indication: PROPHYLAXIS
     Dosage: 1 GRAM
     Route: 048
  2. ROCALTROL [Concomitant]
     Indication: DISEASE COMPLICATION
     Dosage: .5 MICROGRAM
     Route: 048
  3. DEPAS [Concomitant]
     Indication: DISEASE COMPLICATION
     Dosage: .5 MILLIGRAM
     Route: 048
  4. REVLIMID [Suspect]
     Dosage: 25 MILLIGRAM
     Route: 048
     Dates: start: 20110805, end: 20110817
  5. REVLIMID [Suspect]
     Dosage: 25 MILLIGRAM
     Route: 048
     Dates: start: 20110901, end: 20110902
  6. PELTAZON [Concomitant]
     Indication: DISEASE COMPLICATION
     Dosage: 75 MILLIGRAM
     Route: 048
  7. LENDORMIN [Concomitant]
     Indication: DISEASE COMPLICATION
     Dosage: .25 MILLIGRAM
     Route: 048
  8. REVLIMID [Suspect]
     Indication: REFRACTORY CANCER
     Dosage: 25 MILLIGRAM
     Route: 048
     Dates: start: 20110223, end: 20110308
  9. REVLIMID [Suspect]
     Dosage: 25 MILLIGRAM
     Route: 048
     Dates: start: 20110525, end: 20110614
  10. REVLIMID [Suspect]
     Dosage: 25 MILLIGRAM
     Route: 048
     Dates: start: 20110406, end: 20110426
  11. REVLIMID [Suspect]
     Dosage: 25 MILLIGRAM
     Route: 048
     Dates: start: 20111130, end: 20111220
  12. LEVOTHYROXINE SODIUM [Concomitant]
     Indication: DISEASE COMPLICATION
     Dosage: 100 MICROGRAM
     Route: 048
  13. REVLIMID [Suspect]
     Indication: MULTIPLE MYELOMA
     Dosage: 25 MILLIGRAM
     Route: 048
     Dates: start: 20110126, end: 20110215
  14. METHYCOBAL [Concomitant]
     Indication: DISEASE COMPLICATION
     Dosage: 1500 U G
     Route: 048
  15. WARFARIN SODIUM [Concomitant]
     Indication: DISEASE COMPLICATION
     Dosage: 2 MILLIGRAM
     Route: 048
  16. WARFARIN SODIUM [Concomitant]
     Dosage: 3 MILLIGRAM
     Route: 048
     Dates: start: 20110223
  17. DILTIAZEM HCL [Concomitant]
     Indication: DISEASE COMPLICATION
     Dosage: 200 MILLIGRAM
     Route: 048
     Dates: end: 20110905
  18. ACETAMINOPHEN [Concomitant]
     Indication: DISEASE COMPLICATION
     Dosage: 600 MILLIGRAM
     Route: 048
  19. ZOMETA [Concomitant]
     Indication: DISEASE COMPLICATION
     Dosage: 4 MILLIGRAM
     Route: 041
     Dates: start: 20110126
  20. CRESTOR [Concomitant]
     Indication: HYPERLIPIDAEMIA
     Dosage: 2.5 MILLIGRAM
     Route: 048
  21. LANSOPRAZOLE [Concomitant]
     Indication: DISEASE COMPLICATION
     Dosage: 30 MILLIGRAM
     Route: 048

REACTIONS (2)
  - NEUTROPENIA [None]
  - PRINZMETAL ANGINA [None]
